FAERS Safety Report 9288637 (Version 2)
Quarter: 2013Q2

REPORT INFORMATION
  Report Type: Report from Study
  Country: BR (occurrence: BR)
  Receive Date: 20130514
  Receipt Date: 20130609
  Transmission Date: 20140414
  Serious: Yes (Hospitalization, Other)
  Sender: FDA-Public Use
  Company Number: PHHY2013BR046939

PATIENT
  Sex: Female
  Weight: 108 kg

DRUGS (6)
  1. EXELON PATCH [Suspect]
     Indication: DEMENTIA ALZHEIMER^S TYPE
     Dosage: 9.5 MG (PATCH 5 CM2), DAILY
     Route: 062
  2. PROLOPA [Concomitant]
     Indication: PARKINSON^S DISEASE
     Dosage: 3 DF, QD
     Route: 048
  3. PROLOPA HBS [Concomitant]
     Indication: PARKINSON^S DISEASE
     Dosage: 1 DF, QD
     Route: 048
  4. SIFROL [Concomitant]
     Indication: PARKINSON^S DISEASE
     Dosage: 2 DF, QD
     Route: 048
  5. NEULEPTIL [Concomitant]
     Indication: PARKINSON^S DISEASE
     Dosage: UNK UKN, UNK
  6. ANCORON [Concomitant]
     Indication: ARRHYTHMIA
     Dosage: 1 DF, QD (MONDAY TO FRIDAY)
     Route: 048

REACTIONS (5)
  - Stupor [Recovering/Resolving]
  - Eye disorder [Recovering/Resolving]
  - Urinary tract infection [Recovering/Resolving]
  - Hypophagia [Not Recovered/Not Resolved]
  - Weight decreased [Recovered/Resolved]
